FAERS Safety Report 5958815-4 (Version None)
Quarter: 2008Q4

REPORT INFORMATION
  Report Type: 
  Country: None (occurrence: None)
  Receive Date: 20081117
  Receipt Date: 20081104
  Transmission Date: 20090506
  Serious: Yes (Hospitalization, Other)
  Sender: FDA-Public Use
  Company Number: 2008-01169

PATIENT
  Age: 79 Year
  Sex: Female

DRUGS (5)
  1. VELCADE [Suspect]
     Indication: MULTIPLE MYELOMA
     Dosage: 1.3 MG/M2
     Dates: start: 20080129, end: 20080208
  2. MELPHALAN [Concomitant]
  3. PREDNISONE TAB [Concomitant]
  4. VITAMIN B12 [Concomitant]
  5. AREDIA [Concomitant]

REACTIONS (14)
  - ASTHENIA [None]
  - CONSTIPATION [None]
  - CRANIAL NERVE DISORDER [None]
  - DIARRHOEA [None]
  - DIARRHOEA HAEMORRHAGIC [None]
  - DYSSTASIA [None]
  - FATIGUE [None]
  - HYPOAESTHESIA [None]
  - INTESTINAL ISCHAEMIA [None]
  - MALAISE [None]
  - PALLOR [None]
  - SKIN CANCER [None]
  - SKIN GRAFT [None]
  - SQUAMOUS CELL CARCINOMA [None]
